FAERS Safety Report 5106352-1 (Version None)
Quarter: 2006Q3

REPORT INFORMATION
  Report Type: 
  Country: None (occurrence: None)
  Receive Date: 20060918
  Receipt Date: 20060907
  Transmission Date: 20061208
  Serious: Yes (Other)
  Sender: FDA-Public Use
  Company Number: US-JNJFOC-20050305798

PATIENT
  Sex: Male
  Weight: 90.27 kg

DRUGS (4)
  1. REMICADE [Suspect]
     Indication: CROHN'S DISEASE
     Route: 042
  2. PURINETHOL [Concomitant]
  3. FLAGYL [Concomitant]
  4. CANASA [Concomitant]

REACTIONS (1)
  - HODGKIN'S DISEASE [None]
